FAERS Safety Report 9269743 (Version 1)
Quarter: 2013Q2

REPORT INFORMATION
  Report Type: Spontaneous
  Country: DK (occurrence: GB)
  Receive Date: 20130503
  Receipt Date: 20130503
  Transmission Date: 20140414
  Serious: Yes (Other)
  Sender: FDA-Public Use
  Company Number: GB-FRI-1000044890

PATIENT
  Age: 66 Year
  Sex: Female

DRUGS (6)
  1. ESCITALOPRAM [Suspect]
     Route: 048
     Dates: end: 201304
  2. BUSPIRONE [Interacting]
     Indication: ANXIETY
     Dosage: 15 MG
     Route: 048
  3. VALIUM [Interacting]
     Indication: DEPRESSION
     Dosage: 10 MG
     Route: 048
  4. ATORVASTATIN [Concomitant]
     Indication: HYPERCHOLESTEROLAEMIA
     Route: 048
  5. LITHIUM CARBONATE [Concomitant]
     Dosage: 400 MG
     Route: 048
  6. LOFEPRAMINE [Concomitant]
     Dosage: 70 MG
     Route: 048

REACTIONS (11)
  - Circulatory collapse [Unknown]
  - Condition aggravated [Unknown]
  - Dizziness [Not Recovered/Not Resolved]
  - Malaise [Unknown]
  - Headache [Unknown]
  - Nausea [Unknown]
  - Speech disorder [Not Recovered/Not Resolved]
  - Tremor [Unknown]
  - Balance disorder [Not Recovered/Not Resolved]
  - Gait disturbance [Not Recovered/Not Resolved]
  - Drug interaction [Not Recovered/Not Resolved]
